FAERS Safety Report 8776921 (Version 1)
Quarter: 2012Q4

REPORT INFORMATION
  Report Type: 
  Country: IT (occurrence: IT)
  Receive Date: 20120911
  Receipt Date: 20120911
  Transmission Date: 20130627
  Serious: Yes (Other)
  Sender: FDA-Public Use
  Company Number: IT-TEVA-357019ISR

PATIENT
  Age: 52 Year
  Sex: Male

DRUGS (7)
  1. OXALIPLATIN [Suspect]
     Route: 042
     Dates: start: 20120809, end: 20120809
  2. 5-FLUOROURACILE DESOSSINUCLEOSIDE [Concomitant]
     Indication: COLON CANCER STAGE IV
     Route: 042
  3. LEDERFOLIN [Concomitant]
     Indication: VITAMIN SUPPLEMENTATION
     Route: 042
  4. TRIMETON [Concomitant]
     Route: 048
  5. RANIDIL [Concomitant]
     Indication: HYPERCHLORHYDRIA
     Route: 042
  6. SOLDESAM [Concomitant]
     Dosage: 12 Milligram Daily;
     Route: 042
  7. AVASTIN [Concomitant]
     Indication: COLON CANCER STAGE IV
     Route: 042

REACTIONS (2)
  - Respiratory depression [Recovered/Resolved]
  - Rash [Recovered/Resolved]
